FAERS Safety Report 17638573 (Version 1)
Quarter: 2020Q2

REPORT INFORMATION
  Report Type: Report from Study
  Country: US (occurrence: US)
  Receive Date: 20200407
  Receipt Date: 20200407
  Transmission Date: 20200713
  Serious: Yes (Other)
  Sender: FDA-Public Use
  Company Number: US-ASTRAZENECA-2020SE45307

PATIENT
  Sex: Male

DRUGS (2)
  1. TYLENOL [Concomitant]
     Active Substance: ACETAMINOPHEN
  2. CALQUENCE [Suspect]
     Active Substance: ACALABRUTINIB
     Indication: CHRONIC LYMPHOCYTIC LEUKAEMIA
     Route: 048

REACTIONS (9)
  - Nausea [Unknown]
  - Bone pain [Unknown]
  - Lymph node pain [Unknown]
  - Fatigue [Unknown]
  - Headache [Unknown]
  - Chronic lymphocytic leukaemia recurrent [Unknown]
  - Lymph node palpable [Unknown]
  - Feeling abnormal [Recovering/Resolving]
  - Myalgia [Unknown]
